FAERS Safety Report 6647733-4 (Version None)
Quarter: 2010Q1

REPORT INFORMATION
  Report Type: 
  Country: None (occurrence: None)
  Receive Date: 20100317
  Receipt Date: 20100202
  Transmission Date: 20100710
  Serious: Yes (Hospitalization)
  Sender: FDA-Public Use
  Company Number: 2010BI003643

PATIENT
  Age: 68 Year
  Sex: Female

DRUGS (14)
  1. ZEVALIN [Suspect]
     Indication: MANTLE CELL LYMPHOMA
     Dosage: 16.5 MCI;IV
     Route: 042
     Dates: start: 20090116, end: 20090116
  2. DEXAMETHASONE [Concomitant]
  3. RITUXIMAB [Concomitant]
  4. CYCLOPHOSPHAMIDE [Concomitant]
  5. VINCRISTINE [Concomitant]
  6. ADRIAMYCIN PFS [Concomitant]
  7. METHOTREXATE [Concomitant]
  8. CYTARABINE [Concomitant]
  9. OMEPRAZOLE [Concomitant]
  10. VORICONAZOLE [Concomitant]
  11. FOSAMAX [Concomitant]
  12. ARANESP [Concomitant]
  13. ATORVASTATIN CALCIUM [Concomitant]
  14. PREV MEDS [Concomitant]

REACTIONS (1)
  - DYSPNOEA AT REST [None]
